FAERS Safety Report 23967562 (Version 1)
Quarter: 2024Q2

REPORT INFORMATION
  Report Type: Spontaneous
  Country: IT (occurrence: IT)
  Receive Date: 20240612
  Receipt Date: 20240612
  Transmission Date: 20240716
  Serious: Yes (Hospitalization)
  Sender: FDA-Public Use
  Company Number: IT-SA-2024SA172320

PATIENT
  Age: 64 Year
  Sex: Female

DRUGS (11)
  1. DUPILUMAB [Suspect]
     Active Substance: DUPILUMAB
     Indication: Chronic rhinosinusitis with nasal polyps
     Dosage: 600 MG (TWO 300-MG SUBCUTANEOUS (SC) INJECTIONS
     Route: 058
     Dates: start: 20230220
  2. DUPILUMAB [Suspect]
     Active Substance: DUPILUMAB
     Indication: Asthma
     Dosage: 300 MG EVERY 2 WEEKS
     Route: 058
     Dates: start: 2023
  3. MOMETASONE FUROATE [Concomitant]
     Active Substance: MOMETASONE FUROATE
     Indication: Asthma prophylaxis
     Dosage: 100 UG, QD
  4. TIOTROPIUM BROMIDE [Concomitant]
     Active Substance: TIOTROPIUM BROMIDE
     Indication: Asthma prophylaxis
     Dosage: 5 UG, QD
  5. BECLOMETHASONE\FORMOTEROL [Concomitant]
     Active Substance: BECLOMETHASONE\FORMOTEROL
     Indication: Asthma prophylaxis
     Dosage: 800/24 UG QD
  6. PREDNISONE [Concomitant]
     Active Substance: PREDNISONE
     Indication: Eosinophilia
     Dosage: 50 MG
     Route: 048
  7. PREDNISONE [Concomitant]
     Active Substance: PREDNISONE
     Indication: Arthralgia
     Dosage: 25 MG FOR 7?10 DAYS EVERY 12 MONTHS
  8. PREDNISONE [Concomitant]
     Active Substance: PREDNISONE
     Indication: Conjunctivitis
  9. PREDNISONE [Concomitant]
     Active Substance: PREDNISONE
     Indication: Asthma
  10. ALBUTEROL [Concomitant]
     Active Substance: ALBUTEROL
     Indication: Asthma
     Dosage: 400 UG
     Route: 055
  11. MONTELUKAST [Concomitant]
     Active Substance: MONTELUKAST SODIUM
     Indication: Asthma prophylaxis
     Dosage: UNK

REACTIONS (4)
  - Dyspnoea [Unknown]
  - Arthralgia [Recovered/Resolved]
  - Conjunctivitis [Recovered/Resolved]
  - Eosinophilia [Recovering/Resolving]
